FAERS Safety Report 7312715-6 (Version None)
Quarter: 2011Q1

REPORT INFORMATION
  Report Type: 
  Country: None (occurrence: None)
  Receive Date: 20110224
  Receipt Date: 20101111
  Transmission Date: 20110831
  Serious: No
  Sender: FDA-Public Use
  Company Number: US-MYLANLABS-2010S1021476

PATIENT
  Sex: Female

DRUGS (1)
  1. FLUOXETINE [Suspect]
     Route: 048

REACTIONS (2)
  - TACHYCARDIA [None]
  - REACTION TO DRUG EXCIPIENTS [None]
